FAERS Safety Report 4578223-0 (Version None)
Quarter: 2005Q1

REPORT INFORMATION
  Report Type: 
  Country: None (occurrence: None)
  Receive Date: 20050209
  Receipt Date: 20050125
  Transmission Date: 20050727
  Serious: Yes (Other)
  Sender: FDA-Public Use
  Company Number: USA041285136

PATIENT
  Age: 50 Year
  Sex: Female
  Weight: 76 kg

DRUGS (15)
  1. FORTEO [Suspect]
     Indication: OSTEOPENIA
     Dosage: 20 UG DAY
     Dates: start: 20040625, end: 20041221
  2. SYNTHROID (LEVOTHYROXINE SOIDUM) [Concomitant]
  3. PRILOSEC (OMEPRAZOLE RATIOPHARM) [Concomitant]
  4. TYLENOL W/ CODEINE NO. 3 [Concomitant]
  5. MULTI-VITAMIN [Concomitant]
  6. VITAMIN E [Concomitant]
  7. FOLIC ACID [Concomitant]
  8. EFFEXOR [Concomitant]
  9. COUMADIN [Concomitant]
  10. VALIUM [Concomitant]
  11. LIDODERM (LIDOCAINE JELLY) [Concomitant]
  12. FLEXERIL (CYCLOBENZAPRINE MYDROCHLORIDE) [Concomitant]
  13. DIPHENHYDRAMINE HCL [Concomitant]
  14. CALCIUM CARBONATE [Concomitant]
  15. FIEBER [Concomitant]

REACTIONS (2)
  - PHARMACEUTICAL PRODUCT COMPLAINT [None]
  - THROMBOSIS [None]
